FAERS Safety Report 4333883-4 (Version None)
Quarter: 2004Q2

REPORT INFORMATION
  Report Type: 
  Country: None (occurrence: None)
  Receive Date: 20040402
  Receipt Date: 20040402
  Transmission Date: 20050107
  Serious: Yes (Disabling, Congenital Anomaly)
  Sender: FDA-Public Use
  Company Number: None

PATIENT
  Age: 35 Year
  Sex: Male
  Weight: 80.2867 kg

DRUGS (2)
  1. METHYLPREDNISOLONE [Suspect]
     Indication: INTERVERTEBRAL DISC PROTRUSION
     Dosage: 4 MGS 5 PER DAY ORAL
     Route: 048
     Dates: start: 20031002, end: 20031007
  2. METHYLPREDNISOLONE [Suspect]
     Indication: SCIATICA
     Dosage: 4 MGS 5 PER DAY ORAL
     Route: 048
     Dates: start: 20031002, end: 20031007

REACTIONS (1)
  - NEUROPATHY PERIPHERAL [None]
